FAERS Safety Report 23235399 (Version 1)
Quarter: 2023Q4

REPORT INFORMATION
  Report Type: Spontaneous
  Country: US (occurrence: None)
  Receive Date: 20231127
  Receipt Date: 20231127
  Transmission Date: 20240110
  Serious: No
  Sender: FDA-Public Use
  Company Number: None

PATIENT
  Age: 86 Year
  Sex: Female

DRUGS (9)
  1. TAGRISSO [Suspect]
     Active Substance: OSIMERTINIB
     Indication: Skin cancer
     Dosage: FREQUENCY : DAILY;?
     Route: 048
     Dates: start: 20230714
  2. ALPRAZOLAM [Concomitant]
     Active Substance: ALPRAZOLAM
  3. BENZONATATE [Concomitant]
     Active Substance: BENZONATATE
  4. FUROSEMIDE [Concomitant]
     Active Substance: FUROSEMIDE
  5. PANTOPRAZOLE SODIUM [Concomitant]
     Active Substance: PANTOPRAZOLE SODIUM
  6. APIXABAN [Concomitant]
     Active Substance: APIXABAN
  7. HYDROXYUREA [Concomitant]
     Active Substance: HYDROXYUREA
  8. CARDIZEM CD 180MG [Concomitant]
  9. LOSARTAN [Concomitant]
     Active Substance: LOSARTAN

REACTIONS (2)
  - Fatigue [None]
  - Decreased interest [None]

NARRATIVE: CASE EVENT DATE: 20231127
